FAERS Safety Report 7820631-6 (Version None)
Quarter: 2011Q4

REPORT INFORMATION
  Report Type: 
  Country: None (occurrence: None)
  Receive Date: 20111018
  Receipt Date: 20111007
  Transmission Date: 20120403
  Serious: No
  Sender: FDA-Public Use
  Company Number: US-JNJFOC-20111004736

PATIENT
  Sex: Female
  Weight: 101.15 kg

DRUGS (5)
  1. FENTANYL-100 [Suspect]
     Indication: SCIATICA
     Route: 062
  2. FENTANYL-100 [Suspect]
     Indication: ARTHRITIS
     Route: 062
  3. FENTANYL-100 [Suspect]
     Indication: SCOLIOSIS
     Route: 062
  4. FENTANYL-100 [Suspect]
     Indication: POST POLIO SYNDROME
     Route: 062
  5. FENTANYL-100 [Suspect]
     Indication: INTERVERTEBRAL DISC DEGENERATION
     Route: 062

REACTIONS (3)
  - HYPERHIDROSIS [None]
  - PRODUCT QUALITY ISSUE [None]
  - WRONG TECHNIQUE IN DRUG USAGE PROCESS [None]
